FAERS Safety Report 9663891 (Version 1)
Quarter: 2013Q4

REPORT INFORMATION
  Report Type: Spontaneous
  Country: US (occurrence: None)
  Receive Date: 20131030
  Receipt Date: 20131030
  Transmission Date: 20140711
  Serious: Yes (Other)
  Sender: FDA-Public Use
  Company Number: None

PATIENT
  Age: 67 Year
  Sex: Female

DRUGS (8)
  1. CLINDAMYCIN [Suspect]
     Indication: TOOTH ABSCESS
     Dosage: 1X43 A DAY, ADAY, ORAL W/8 OZ WATER
     Route: 048
     Dates: start: 20130927, end: 20130927
  2. GLYB/METFORM [Concomitant]
  3. LOSARTAN/HCTZ 100/25 [Concomitant]
  4. SIMVASTATIN [Concomitant]
  5. LANTUS [Concomitant]
  6. NOVOLOG [Concomitant]
  7. MULTI VIT [Concomitant]
  8. V ^D^ [Concomitant]

REACTIONS (3)
  - Pruritus [None]
  - Swelling [None]
  - Unevaluable event [None]
